FAERS Safety Report 17109300 (Version 1)
Quarter: 2019Q4

REPORT INFORMATION
  Report Type: Spontaneous
  Country: DO (occurrence: DO)
  Receive Date: 20191204
  Receipt Date: 20191204
  Transmission Date: 20200122
  Serious: Yes (Other)
  Sender: FDA-Public Use
  Company Number: DO-SA-2019SA334485

PATIENT
  Sex: Female

DRUGS (1)
  1. PLAVIX [Suspect]
     Active Substance: CLOPIDOGREL BISULFATE
     Dosage: 1 TABLET / 24 HOURS
     Route: 048

REACTIONS (3)
  - Catheter placement [Unknown]
  - Cardiac disorder [Unknown]
  - Surgery [Unknown]

NARRATIVE: CASE EVENT DATE: 2016
